FAERS Safety Report 7871747-X (Version None)
Quarter: 2011Q4

REPORT INFORMATION
  Report Type: 
  Country: None (occurrence: None)
  Receive Date: 20111014
  Receipt Date: 20100823
  Transmission Date: 20120403
  Serious: Yes (Other)
  Sender: FDA-Public Use
  Company Number: 1000015749

PATIENT
  Age: 53 Year
  Sex: Female

DRUGS (7)
  1. KEPPRA [Suspect]
     Dates: start: 20080101
  2. SYNTHROID [Concomitant]
  3. LEXAPRO [Suspect]
     Dosage: 10 MG (10 MG, 1 IN 1 D), ORAL 5 MG (5 MG, 1 IN 1 D), ORAL 2.5 (2.5 MG, EVERY OTHER DAY), ORAL
     Route: 048
     Dates: start: 20100201, end: 20100501
  4. LEXAPRO [Suspect]
     Dosage: 10 MG (10 MG, 1 IN 1 D), ORAL 5 MG (5 MG, 1 IN 1 D), ORAL 2.5 (2.5 MG, EVERY OTHER DAY), ORAL
     Route: 048
     Dates: start: 20080901, end: 20100201
  5. LEXAPRO [Suspect]
     Dosage: 10 MG (10 MG, 1 IN 1 D), ORAL 5 MG (5 MG, 1 IN 1 D), ORAL 2.5 (2.5 MG, EVERY OTHER DAY), ORAL
     Route: 048
     Dates: start: 20100501, end: 20100501
  6. LEXAPRO [Suspect]
     Dosage: 10 MG (10 MG, 1 IN 1 D), ORAL
     Route: 048
     Dates: start: 20100601
  7. ASPIRIN [Concomitant]

REACTIONS (8)
  - THIRST [None]
  - PAIN [None]
  - WEIGHT INCREASED [None]
  - PRODUCTIVE COUGH [None]
  - FEELING ABNORMAL [None]
  - SUICIDAL IDEATION [None]
  - CRYING [None]
  - DRY MOUTH [None]
